FAERS Safety Report 7743289-3 (Version None)
Quarter: 2011Q3

REPORT INFORMATION
  Report Type: 
  Country: None (occurrence: None)
  Receive Date: 20110825
  Receipt Date: 20110816
  Transmission Date: 20111222
  Serious: Yes (Hospitalization)
  Sender: FDA-Public Use
  Company Number: 2010SP006068

PATIENT
  Age: 37 Year
  Sex: Female
  Weight: 104.3273 kg

DRUGS (2)
  1. NUVARING [Suspect]
     Indication: CONTRACEPTION
     Dates: start: 20070901, end: 20080201
  2. COUMADIN [Suspect]
     Indication: DEEP VEIN THROMBOSIS
     Dosage: 5 MG
     Dates: start: 20080101

REACTIONS (19)
  - CELLULITIS [None]
  - INJURY [None]
  - DEEP VEIN THROMBOSIS [None]
  - URINARY TRACT INFECTION STAPHYLOCOCCAL [None]
  - ABDOMINAL PAIN UPPER [None]
  - DIARRHOEA [None]
  - ACUTE SINUSITIS [None]
  - ACCIDENT [None]
  - HAEMORRHAGE [None]
  - OEDEMA [None]
  - LYMPHOEDEMA [None]
  - BACK PAIN [None]
  - VOMITING [None]
  - MYOSITIS [None]
  - MENORRHAGIA [None]
  - HYPERHOMOCYSTEINAEMIA [None]
  - NAUSEA [None]
  - ANTIPHOSPHOLIPID ANTIBODIES POSITIVE [None]
  - FASCIITIS [None]
